FAERS Safety Report 5528079-4 (Version None)
Quarter: 2007Q4

REPORT INFORMATION
  Report Type: 
  Country: None (occurrence: None)
  Receive Date: 20071128
  Receipt Date: 20071122
  Transmission Date: 20080405
  Serious: Yes (Hospitalization)
  Sender: FDA-Public Use
  Company Number: TR-BRISTOL-MYERS SQUIBB COMPANY-13983333

PATIENT
  Age: 74 Year
  Sex: Female

DRUGS (1)
  1. ABILIFY [Suspect]
     Indication: HALLUCINATION, VISUAL
     Route: 048

REACTIONS (2)
  - CEREBRAL HAEMATOMA [None]
  - CEREBROVASCULAR ACCIDENT [None]
